FAERS Safety Report 23397378 (Version 1)
Quarter: 2024Q1

REPORT INFORMATION
  Report Type: Spontaneous
  Country: US (occurrence: US)
  Receive Date: 20240112
  Receipt Date: 20240112
  Transmission Date: 20240410
  Serious: Yes (Death, Hospitalization, Other)
  Sender: FDA-Public Use
  Company Number: US-PFIZER INC-202400010135

PATIENT
  Age: 57 Year
  Sex: Female

DRUGS (6)
  1. LEVOTHYROXINE SODIUM [Suspect]
     Active Substance: LEVOTHYROXINE SODIUM
     Dosage: UNK
     Route: 048
  2. METFORMIN [Suspect]
     Active Substance: METFORMIN HYDROCHLORIDE
     Dosage: UNK, INGESTION
     Route: 048
  3. DIPHENHYDRAMINE [Suspect]
     Active Substance: DIPHENHYDRAMINE
     Dosage: UNK, INGESTION
     Route: 048
  4. LOSARTAN [Suspect]
     Active Substance: LOSARTAN
     Dosage: UNK, INGESTION
     Route: 048
  5. VENLAFAXINE [Suspect]
     Active Substance: VENLAFAXINE HYDROCHLORIDE
     Dosage: UNK, INGESTION
     Route: 048
  6. MELATONIN [Suspect]
     Active Substance: MELATONIN
     Dosage: UNK, INGESTION
     Route: 048

REACTIONS (1)
  - Completed suicide [Fatal]

NARRATIVE: CASE EVENT DATE: 20220101
